FAERS Safety Report 5160564-X (Version None)
Quarter: 2006Q4

REPORT INFORMATION
  Report Type: 
  Country: None (occurrence: None)
  Receive Date: 20061121
  Receipt Date: 20061109
  Transmission Date: 20070319
  Serious: Yes (Other)
  Sender: FDA-Public Use
  Company Number: 2006098765

PATIENT
  Age: 23 Year
  Sex: Female
  Weight: 66.2252 kg

DRUGS (6)
  1. GEODON [Suspect]
     Indication: AGGRESSION
     Dosage: 200 MG (100 MG, 2 IN 1 D)
  2. GEODON [Suspect]
     Indication: BIPOLAR DISORDER
     Dosage: 200 MG (100 MG, 2 IN 1 D)
  3. XANAX [Suspect]
     Indication: ANXIETY
     Dosage: 4 MG 1 (1 MG, AS NECESSARY)
  4. ZYPREXA [Suspect]
     Indication: AGGRESSION
  5. TOPAMAX [Concomitant]
  6. CELEXA [Concomitant]

REACTIONS (4)
  - AGGRESSION [None]
  - HALLUCINATION [None]
  - SCHIZOPHRENIA, PARANOID TYPE [None]
  - WEIGHT INCREASED [None]
